FAERS Safety Report 17818023 (Version 1)
Quarter: 2020Q2

REPORT INFORMATION
  Report Type: Report from Study
  Country: CA (occurrence: CA)
  Receive Date: 20200522
  Receipt Date: 20200522
  Transmission Date: 20200714
  Serious: Yes (Hospitalization, Other)
  Sender: FDA-Public Use
  Company Number: CA-SA-2020SA031860

PATIENT
  Age: 2 Year
  Sex: Male
  Weight: 13.2 kg

DRUGS (27)
  1. BECLOMETHASONE [BECLOMETASONE] [Concomitant]
     Active Substance: BECLOMETHASONE
     Dosage: 1 DF, BID
  2. SALBUTAMOL [Concomitant]
     Active Substance: ALBUTEROL
     Dosage: 2 DF
  3. DIGOXIN. [Concomitant]
     Active Substance: DIGOXIN
     Indication: CARDIAC FAILURE
     Dosage: 38 UG, BID VIA PEG TUBE
  4. EPINEPHRINE. [Concomitant]
     Active Substance: EPINEPHRINE
     Dosage: 0.11 MG, PRN; VIA PEG 30 MIN PRIOR TO FEED
  5. TOBRAMYCIN. [Concomitant]
     Active Substance: TOBRAMYCIN
     Route: 055
  6. ALGLUCOSIDASE ALFA [Suspect]
     Active Substance: ALGLUCOSIDASE ALFA
     Dosage: 40 MG/KG
     Route: 041
     Dates: start: 20200204
  7. DIGOXIN. [Concomitant]
     Active Substance: DIGOXIN
     Dosage: 40 UNK
     Route: 048
  8. OMEPRAZOLE. [Concomitant]
     Active Substance: OMEPRAZOLE
     Dosage: 10 MG, BID VIA PEG 30 MIN PRIOR TO FEED
  9. CHLORHEXIDINE GLUCONATE. [Concomitant]
     Active Substance: CHLORHEXIDINE GLUCONATE
     Dosage: 0.12 ORAL RINSE PRN
  10. CARVEDILOL. [Concomitant]
     Active Substance: CARVEDILOL
     Dosage: 6 MG
     Route: 048
  11. ENALAPRIL [Concomitant]
     Active Substance: ENALAPRIL
     Indication: CARDIAC FAILURE
     Dosage: 2.75 MG, Q12H VIA PEG TUBE
  12. HYDROCORTISONE. [Concomitant]
     Active Substance: HYDROCORTISONE
     Indication: ERYTHEMA
     Dosage: 0.5 , PRN
  13. VITAMIN D [VITAMIN D NOS] [Concomitant]
     Active Substance: VITAMIN D NOS
     Dosage: 1000 IU, QD VIA PEG TUBE
     Route: 050
  14. ACETAMINOPHEN. [Concomitant]
     Active Substance: ACETAMINOPHEN
     Dosage: 170 MG, PRN QBH
  15. ALGLUCOSIDASE ALFA [Suspect]
     Active Substance: ALGLUCOSIDASE ALFA
     Indication: GLYCOGEN STORAGE DISEASE TYPE II
     Dosage: 40.44 MG/KG (550 MG), QOW
     Route: 041
     Dates: start: 20170920
  16. ALGLUCOSIDASE ALFA [Suspect]
     Active Substance: ALGLUCOSIDASE ALFA
     Dosage: 450 MG, QOW
     Route: 042
  17. HEPARIN [Concomitant]
     Active Substance: HEPARIN SODIUM
     Dosage: 3 ML, QD FLUSH TUNNELED CVC
  18. SPIRONOLACTONE. [Concomitant]
     Active Substance: SPIRONOLACTONE
     Indication: POLYURIA
     Dosage: 11 MG, QD PEG TUBE
  19. TOBRAMYCIN. [Concomitant]
     Active Substance: TOBRAMYCIN
     Dosage: 10 MG, QOW
     Route: 065
  20. QVAR [Concomitant]
     Active Substance: BECLOMETHASONE DIPROPIONATE
  21. PREVACID [Concomitant]
     Active Substance: LANSOPRAZOLE
  22. CARVEDILOL. [Concomitant]
     Active Substance: CARVEDILOL
     Indication: CARDIAC FAILURE
     Dosage: 5.5 MG, BID VIA GASTROSTOMY TUBE
     Route: 065
  23. BECLOMETHASONE [BECLOMETASONE] [Concomitant]
     Active Substance: BECLOMETHASONE
     Dosage: 100 UG, BID
  24. ENALAPRIL [Concomitant]
     Active Substance: ENALAPRIL
     Dosage: 3 MG
     Route: 048
  25. SPIRONOLACTONE. [Concomitant]
     Active Substance: SPIRONOLACTONE
     Dosage: 12 MG
     Route: 048
  26. HYDROCORTISONE SODIUM SUCCINATE [Concomitant]
     Active Substance: HYDROCORTISONE SODIUM SUCCINATE
     Dosage: 10 MG, PRN
     Route: 065
  27. DIPHENHYDRAMINE. [Concomitant]
     Active Substance: DIPHENHYDRAMINE
     Dosage: 4 MG, PRN

REACTIONS (47)
  - Blood pressure systolic decreased [Recovering/Resolving]
  - Gastric ulcer [Unknown]
  - Body temperature increased [Unknown]
  - Left ventricular hypertrophy [Unknown]
  - Hepatic enzyme increased [Unknown]
  - Salivary hypersecretion [Recovering/Resolving]
  - Ear tube insertion [Unknown]
  - Gastrostomy tube removal [Unknown]
  - Gastrostomy tube removal [Unknown]
  - Escherichia bacteraemia [Unknown]
  - Hypotension [Unknown]
  - Bacterial disease carrier [Recovered/Resolved]
  - Viral tracheitis [Unknown]
  - Pulmonary oedema [Unknown]
  - Depressed level of consciousness [Recovering/Resolving]
  - Dyspnoea [Recovering/Resolving]
  - Lethargy [Recovered/Resolved]
  - Heart rate increased [Unknown]
  - Restlessness [Unknown]
  - Hypoglycaemia [Recovered/Resolved]
  - Acinetobacter test positive [Unknown]
  - Removal of foreign body from throat [Unknown]
  - Blood creatinine increased [Unknown]
  - Lymphocyte count decreased [Unknown]
  - Aspartate aminotransferase increased [Unknown]
  - Urine output decreased [Unknown]
  - Vomiting [Recovered/Resolved]
  - Pyrexia [Recovering/Resolving]
  - Pallor [Recovered/Resolved]
  - Septic shock [Unknown]
  - Enterobacter infection [Recovered/Resolved]
  - Crying [Unknown]
  - Blood pressure increased [Unknown]
  - Dyspnoea [Unknown]
  - Blood urea increased [Unknown]
  - Gastrointestinal haemorrhage [Recovered/Resolved]
  - Pleural effusion [Unknown]
  - Vascular device infection [Unknown]
  - Gamma-glutamyltransferase increased [Unknown]
  - Central venous catheterisation [Unknown]
  - Tremor [Recovering/Resolving]
  - Systemic candida [Unknown]
  - Respiratory failure [Unknown]
  - Alanine aminotransferase increased [Unknown]
  - Vomiting [Unknown]
  - Blood creatine phosphokinase increased [Unknown]
  - International normalised ratio increased [Recovered/Resolved]

NARRATIVE: CASE EVENT DATE: 20180821
